FAERS Safety Report 8071081-1 (Version None)
Quarter: 2012Q1

REPORT INFORMATION
  Report Type: 
  Country: None (occurrence: None)
  Receive Date: 20120125
  Receipt Date: 20120118
  Transmission Date: 20120608
  Serious: Yes (Other)
  Sender: FDA-Public Use
  Company Number: US-PFIZER INC-2012015529

PATIENT
  Age: 41 Year
  Sex: Female

DRUGS (2)
  1. ARMODAFINIL [Suspect]
     Dosage: UNK
  2. NIZORAL [Suspect]
     Dosage: UNK

REACTIONS (7)
  - CELLULITIS [None]
  - LIMB DISCOMFORT [None]
  - OEDEMA PERIPHERAL [None]
  - ERYTHEMA [None]
  - GAIT DISTURBANCE [None]
  - PAIN IN EXTREMITY [None]
  - DRUG INEFFECTIVE [None]
